FAERS Safety Report 25579591 (Version 1)
Quarter: 2025Q3

REPORT INFORMATION
  Report Type: Spontaneous
  Country: EU (occurrence: EU)
  Receive Date: 20250718
  Receipt Date: 20250718
  Transmission Date: 20251021
  Serious: Yes (Hospitalization, Other)
  Sender: GE HEALTHCARE
  Company Number: EU-GE HEALTHCARE-2025CSU009189

PATIENT
  Age: 57 Year
  Sex: Male

DRUGS (1)
  1. VISIPAQUE [Suspect]
     Active Substance: IODIXANOL
     Indication: Angiocardiogram
     Route: 065

REACTIONS (1)
  - Kounis syndrome [Recovered/Resolved]
